FAERS Safety Report 8230887-6 (Version None)
Quarter: 2012Q1

REPORT INFORMATION
  Report Type: 
  Country: None (occurrence: None)
  Receive Date: 20120323
  Receipt Date: 20120316
  Transmission Date: 20120608
  Serious: Yes (Other)
  Sender: FDA-Public Use
  Company Number: BR-SANOFI-AVENTIS-2012SA018506

PATIENT
  Age: 69 Year
  Sex: Male
  Weight: 73 kg

DRUGS (6)
  1. HUMALOG [Concomitant]
     Dosage: ACCORDING TO GLYCEMIA
     Route: 058
  2. OMEPRAZOLE [Concomitant]
     Indication: GASTRITIS
     Route: 048
     Dates: start: 19720101
  3. BENERVA [Concomitant]
     Indication: VITAMIN B COMPLEX DEFICIENCY
     Route: 048
  4. LANTUS [Suspect]
     Route: 058
     Dates: start: 20090101
  5. CLIKSTAR [Suspect]
     Indication: DEVICE THERAPY
     Dates: start: 20090101
  6. GABAPENTIN [Concomitant]
     Indication: NEUROPATHY PERIPHERAL
     Route: 048
     Dates: start: 20060101

REACTIONS (9)
  - HYPOGLYCAEMIA [None]
  - VISION BLURRED [None]
  - HYPERGLYCAEMIA [None]
  - ASTHENIA [None]
  - RETINAL DETACHMENT [None]
  - AGITATION [None]
  - BLINDNESS UNILATERAL [None]
  - DIABETIC RETINOPATHY [None]
  - HYPERHIDROSIS [None]
